FAERS Safety Report 8337969-9 (Version None)
Quarter: 2012Q2

REPORT INFORMATION
  Report Type: 
  Country: None (occurrence: None)
  Receive Date: 20120504
  Receipt Date: 20120424
  Transmission Date: 20120825
  Serious: Yes (Death, Hospitalization)
  Sender: FDA-Public Use
  Company Number: HU-BRISTOL-MYERS SQUIBB COMPANY-16545311

PATIENT
  Age: 69 Year
  Sex: Male
  Weight: 66 kg

DRUGS (9)
  1. BERODUAL [Concomitant]
     Dates: start: 20120125
  2. FRAXIPARINE [Concomitant]
     Dates: start: 20120201
  3. PORTIRON [Concomitant]
     Dates: start: 20100101
  4. FRONTIN [Concomitant]
     Dates: start: 20120126
  5. FUROSEMIDE [Concomitant]
     Dates: start: 20120126
  6. CISPLATIN [Suspect]
     Indication: NON-SMALL CELL LUNG CANCER
     Dosage: LAST DOSE ON 13APR12
     Route: 065
     Dates: start: 20120215
  7. NECITUMUMAB [Suspect]
     Indication: NON-SMALL CELL LUNG CANCER
     Dosage: LIQUID;LAST DOSE ON 13APR12
     Route: 065
     Dates: start: 20120215
  8. GEMCITABINE HYDROCHLORIDE [Suspect]
     Indication: NON-SMALL CELL LUNG CANCER
     Dosage: LAST DOSE ON 13APR12 2250MG
     Route: 065
     Dates: start: 20120215
  9. ONDANSETRON [Concomitant]
     Dates: start: 20120115

REACTIONS (1)
  - RESPIRATORY FAILURE [None]
